FAERS Safety Report 23296405 (Version 1)
Quarter: 2023Q4

REPORT INFORMATION
  Report Type: Spontaneous
  Country: US (occurrence: None)
  Receive Date: 20231214
  Receipt Date: 20231214
  Transmission Date: 20240110
  Serious: Yes (Disabling)
  Sender: FDA-Public Use
  Company Number: None

PATIENT
  Age: 70 Year
  Sex: Male
  Weight: 94.5 kg

DRUGS (1)
  1. ELIQUIS [Suspect]
     Active Substance: APIXABAN
     Dates: start: 20191101

REACTIONS (4)
  - Sweat gland disorder [None]
  - Myalgia [None]
  - Arthralgia [None]
  - Intentional product use issue [None]

NARRATIVE: CASE EVENT DATE: 20230615
